FAERS Safety Report 10721279 (Version 1)
Quarter: 2015Q1

REPORT INFORMATION
  Report Type: Spontaneous
  Country: US (occurrence: US)
  Receive Date: 20150119
  Receipt Date: 20150119
  Transmission Date: 20150721
  Serious: No
  Sender: FDA-Public Use
  Company Number: US-ASTRAZENECA-2015SE02355

PATIENT
  Age: 713 Month
  Sex: Female
  Weight: 93 kg

DRUGS (4)
  1. XGEVA [Concomitant]
     Active Substance: DENOSUMAB
     Indication: BONE LOSS
     Route: 030
     Dates: start: 201409
  2. ARIMIDEX [Suspect]
     Active Substance: ANASTROZOLE
     Indication: BREAST CANCER
     Route: 048
     Dates: end: 201407
  3. FASLODEX [Suspect]
     Active Substance: FULVESTRANT
     Indication: BREAST CANCER STAGE IV
     Route: 030
     Dates: start: 201409, end: 20141202
  4. AVASTIN [Concomitant]
     Active Substance: BEVACIZUMAB

REACTIONS (5)
  - Bone pain [Unknown]
  - Adverse event [Unknown]
  - Intentional product misuse [Not Recovered/Not Resolved]
  - Dyspepsia [Unknown]
  - Weight abnormal [Unknown]

NARRATIVE: CASE EVENT DATE: 201409
